FAERS Safety Report 8293802-5 (Version None)
Quarter: 2012Q2

REPORT INFORMATION
  Report Type: 
  Country: None (occurrence: None)
  Receive Date: 20120413
  Receipt Date: 20120331
  Transmission Date: 20120825
  Serious: Yes (Hospitalization)
  Sender: FDA-Public Use
  Company Number: AXC-2012-000110

PATIENT
  Age: 12 Year
  Sex: Female

DRUGS (4)
  1. ZENPEP [Suspect]
     Indication: PRODUCT USED FOR UNKNOWN INDICATION
     Dosage: SEE IMAGE
     Route: 048
     Dates: start: 20110328, end: 20110101
  2. ZENPEP [Suspect]
     Indication: PRODUCT USED FOR UNKNOWN INDICATION
     Dosage: SEE IMAGE
     Route: 048
     Dates: start: 20100110, end: 20100101
  3. ZENPEP [Suspect]
     Indication: PRODUCT USED FOR UNKNOWN INDICATION
     Dosage: SEE IMAGE
     Route: 048
     Dates: start: 20100126, end: 20100101
  4. CREON [Suspect]
     Indication: PRODUCT USED FOR UNKNOWN INDICATION
     Dosage: 3 WITH MEALS AND SNACKS
     Dates: start: 20110404

REACTIONS (2)
  - DISTAL ILEAL OBSTRUCTION SYNDROME [None]
  - FLATULENCE [None]
